FAERS Safety Report 17860990 (Version 1)
Quarter: 2020Q2

REPORT INFORMATION
  Report Type: Spontaneous
  Country: US (occurrence: US)
  Receive Date: 20200604
  Receipt Date: 20200604
  Transmission Date: 20200714
  Serious: Yes (Other)
  Sender: FDA-Public Use
  Company Number: None

PATIENT
  Age: 40 Year
  Sex: Male
  Weight: 170.4 kg

DRUGS (9)
  1. HEPARIN [Concomitant]
     Active Substance: HEPARIN SODIUM
     Dates: start: 20200524
  2. ACETAMINOPHEN. [Concomitant]
     Active Substance: ACETAMINOPHEN
     Dates: start: 20200524
  3. HYDROMORPHONE [Concomitant]
     Active Substance: HYDROMORPHONE
     Dates: start: 20200524
  4. DOXYCYCLINE. [Concomitant]
     Active Substance: DOXYCYCLINE
     Dates: start: 20200524, end: 20200528
  5. PROPOFOL. [Concomitant]
     Active Substance: PROPOFOL
     Dates: start: 20200524
  6. CEFTRIAXONE. [Concomitant]
     Active Substance: CEFTRIAXONE
     Dates: start: 20200524, end: 20200528
  7. FAMOTIDINE. [Concomitant]
     Active Substance: FAMOTIDINE
     Dates: start: 20200524
  8. EPOPROSTENOL. [Concomitant]
     Active Substance: EPOPROSTENOL
     Dates: start: 20200524
  9. REMDESIVIR. [Suspect]
     Active Substance: REMDESIVIR
     Indication: COVID-19
     Route: 041
     Dates: start: 20200524, end: 20200603

REACTIONS (2)
  - Aspartate aminotransferase increased [None]
  - Blood bilirubin increased [None]

NARRATIVE: CASE EVENT DATE: 20200603
